FAERS Safety Report 4678216-9 (Version None)
Quarter: 2005Q2

REPORT INFORMATION
  Report Type: 
  Country: None (occurrence: None)
  Receive Date: 20050601
  Receipt Date: 20041201
  Transmission Date: 20051028
  Serious: Yes (Other)
  Sender: FDA-Public Use
  Company Number: PHBS2004JP16405

PATIENT
  Age: 2 Year
  Sex: Male
  Weight: 13 kg

DRUGS (8)
  1. FUTHAN [Concomitant]
     Dosage: 57.6 MG/D
     Route: 041
     Dates: start: 20041017, end: 20041130
  2. PRODIF [Concomitant]
     Dosage: 48 MG/D
     Route: 042
     Dates: start: 20041125, end: 20041209
  3. NEO-MINOPHAGEN C [Concomitant]
     Dosage: 20 ML/D
     Route: 042
     Dates: start: 20041120, end: 20041229
  4. URSO [Concomitant]
     Dosage: 45 MG/D
     Route: 048
     Dates: start: 20041120, end: 20050118
  5. DECADRON [Concomitant]
     Dosage: 5.4 - 2.7 - 1.35 MG
     Route: 042
     Dates: start: 20041126, end: 20041228
  6. DECADRON [Concomitant]
     Dosage: 1.5 MG/D
     Route: 048
     Dates: start: 20041229, end: 20050118
  7. VEPESID [Concomitant]
     Dosage: 80 MG/D
     Route: 041
     Dates: start: 20041226, end: 20050127
  8. NEORAL [Suspect]
     Indication: HISTIOCYTOSIS HAEMATOPHAGIC
     Dosage: 60 MG/D
     Route: 048
     Dates: start: 20041125, end: 20050118

REACTIONS (3)
  - ATRIOVENTRICULAR BLOCK SECOND DEGREE [None]
  - HEART RATE DECREASED [None]
  - HYPOTHERMIA [None]
